FAERS Safety Report 17189470 (Version 1)
Quarter: 2019Q4

REPORT INFORMATION
  Report Type: Spontaneous
  Country: CN (occurrence: CN)
  Receive Date: 20191223
  Receipt Date: 20191223
  Transmission Date: 20200122
  Serious: Yes (Other)
  Sender: FDA-Public Use
  Company Number: CN-BEH-2019110832

PATIENT
  Age: 53 Year
  Sex: Male

DRUGS (2)
  1. ALBUMIN HUMAN (INN) [Suspect]
     Active Substance: ALBUMIN HUMAN
     Indication: INJURY
  2. ALBUMIN HUMAN (INN) [Suspect]
     Active Substance: ALBUMIN HUMAN
     Indication: SHOCK HAEMORRHAGIC
     Dosage: UNK
     Route: 065
     Dates: start: 20151225, end: 20151225

REACTIONS (3)
  - Oxygen saturation decreased [Unknown]
  - Respiratory rate increased [Unknown]
  - Blood pressure decreased [Unknown]

NARRATIVE: CASE EVENT DATE: 20151225
